FAERS Safety Report 9168271 (Version 2)
Quarter: 2014Q3

REPORT INFORMATION
  Report Type: Report from Study
  Country: US (occurrence: US)
  Receive Date: 20130318
  Receipt Date: 20140812
  Transmission Date: 20150326
  Serious: Yes (Other)
  Sender: FDA-Public Use
  Company Number: PHEH2013US006060

PATIENT
  Age: 58 Year
  Sex: Female
  Weight: 65.76 kg

DRUGS (9)
  1. OXYCODONE [Concomitant]
     Active Substance: OXYCODONE
  2. NORTRIPTYLINE [Concomitant]
     Active Substance: NORTRIPTYLINE
  3. FENTANYL. [Concomitant]
     Active Substance: FENTANYL
  4. TRAZODONE [Concomitant]
     Active Substance: TRAZODONE HYDROCHLORIDE
  5. CM PROMETHAZINE [Concomitant]
  6. GILENYA [Suspect]
     Active Substance: FINGOLIMOD HYDROCHLORIDE
     Indication: MULTIPLE SCLEROSIS
     Dosage: 0.5 MG, QD
     Dates: start: 20130313
  7. CYMBALTA [Concomitant]
     Active Substance: DULOXETINE HYDROCHLORIDE
  8. ESTRADIOL. [Concomitant]
     Active Substance: ESTRADIOL
  9. HYDROCODONE [Concomitant]
     Active Substance: HYDROCODONE

REACTIONS (14)
  - Anxiety [Recovering/Resolving]
  - Somnolence [Recovering/Resolving]
  - Fatigue [Recovering/Resolving]
  - Hypoaesthesia [Recovering/Resolving]
  - Nasopharyngitis [Recovered/Resolved]
  - Paraesthesia [Recovering/Resolving]
  - Asthenia [Recovering/Resolving]
  - Dysarthria [Recovered/Resolved]
  - Vertigo [Recovering/Resolving]
  - Dizziness [Recovered/Resolved]
  - Malaise [Recovering/Resolving]
  - Blood pressure fluctuation [Recovering/Resolving]
  - Confusional state [Recovered/Resolved]
  - Slow speech [Recovered/Resolved]

NARRATIVE: CASE EVENT DATE: 20130313
